FAERS Safety Report 7093557-6 (Version None)
Quarter: 2010Q4

REPORT INFORMATION
  Report Type: 
  Country: None (occurrence: None)
  Receive Date: 20101102
  Receipt Date: 20101028
  Transmission Date: 20110411
  Serious: Yes (Death, Other)
  Sender: FDA-Public Use
  Company Number: 2010SP055283

PATIENT
  Age: 68 Year
  Sex: Male

DRUGS (5)
  1. INTEGRILIN [Suspect]
     Indication: STENT PLACEMENT
     Dates: start: 20100901, end: 20100901
  2. ANGIOMAX [Suspect]
     Indication: STENT PLACEMENT
     Dosage: INBO, IV
     Route: 040
     Dates: start: 20100904, end: 20100904
  3. ANGIOMAX [Suspect]
     Indication: STENT PLACEMENT
     Dosage: INBO, IV
     Route: 040
     Dates: start: 20100904, end: 20100904
  4. HEPARIN [Concomitant]
  5. SOTALOL [Concomitant]

REACTIONS (2)
  - CARDIOGENIC SHOCK [None]
  - INTERNATIONAL NORMALISED RATIO INCREASED [None]
